FAERS Safety Report 4527342-3 (Version None)
Quarter: 2004Q4

REPORT INFORMATION
  Report Type: 
  Country: None (occurrence: None)
  Receive Date: 20041214
  Receipt Date: 20041214
  Transmission Date: 20050328
  Serious: Yes (Death)
  Sender: FDA-Public Use
  Company Number: None

PATIENT
  Age: 38 Year
  Sex: Female
  Weight: 54.8852 kg

DRUGS (1)
  1. XIGRIS [Suspect]
     Indication: SEPSIS
     Dosage: 24 MCG  KG/HR X 96 HOUR
     Dates: start: 20041109, end: 20041111

REACTIONS (4)
  - HAEMOGLOBIN DECREASED [None]
  - HAEMORRHAGE INTRACRANIAL [None]
  - NERVOUS SYSTEM DISORDER [None]
  - SUBDURAL HAEMORRHAGE [None]
